FAERS Safety Report 24637432 (Version 2)
Quarter: 2024Q4

REPORT INFORMATION
  Report Type: Spontaneous
  Country: DE (occurrence: DE)
  Receive Date: 20241119
  Receipt Date: 20241203
  Transmission Date: 20250115
  Serious: Yes (Other)
  Sender: NOVARTIS
  Company Number: DE-HIKMA PHARMACEUTICALS-DE-H14001-24-05272

PATIENT
  Age: 33 Year
  Sex: Female

DRUGS (12)
  1. MYCOPHENOLIC ACID [Suspect]
     Active Substance: MYCOPHENOLIC ACID
     Indication: Myasthenia gravis
     Dosage: UNK
     Route: 065
  2. MYCOPHENOLIC ACID [Suspect]
     Active Substance: MYCOPHENOLIC ACID
     Indication: Myasthenic syndrome
  3. RITUXIMAB [Suspect]
     Active Substance: RITUXIMAB
     Indication: Myasthenia gravis
     Dosage: UNK
     Route: 065
  4. RITUXIMAB [Suspect]
     Active Substance: RITUXIMAB
     Indication: Myasthenic syndrome
  5. VELCADE [Suspect]
     Active Substance: BORTEZOMIB
     Indication: Myasthenic syndrome
     Dosage: UNK
     Route: 065
  6. VELCADE [Suspect]
     Active Substance: BORTEZOMIB
     Indication: Myasthenia gravis
  7. ECULIZUMAB [Suspect]
     Active Substance: ECULIZUMAB
     Indication: Myasthenic syndrome
     Dosage: UNK
     Route: 065
  8. ECULIZUMAB [Suspect]
     Active Substance: ECULIZUMAB
     Indication: Myasthenia gravis
  9. CYCLOPHOSPHAMIDE [Suspect]
     Active Substance: CYCLOPHOSPHAMIDE
     Indication: Myasthenia gravis
     Dosage: UNK
     Route: 065
  10. CYCLOPHOSPHAMIDE [Suspect]
     Active Substance: CYCLOPHOSPHAMIDE
     Indication: Myasthenic syndrome
  11. DARZALEX [Suspect]
     Active Substance: DARATUMUMAB
     Indication: Myasthenia gravis
     Dosage: UNK
     Route: 065
  12. DARZALEX [Suspect]
     Active Substance: DARATUMUMAB
     Indication: Myasthenic syndrome

REACTIONS (2)
  - Adverse drug reaction [Unknown]
  - Drug ineffective [Unknown]
